FAERS Safety Report 7348951-2 (Version None)
Quarter: 2011Q1

REPORT INFORMATION
  Report Type: 
  Country: None (occurrence: None)
  Receive Date: 20110314
  Receipt Date: 20110214
  Transmission Date: 20110831
  Serious: No
  Sender: FDA-Public Use
  Company Number: US-B.I. PHARMACEUTICALS,INC./RIDGEFIELD-2011-BP-05456BP

PATIENT
  Sex: Female

DRUGS (5)
  1. PRADAXA [Suspect]
     Indication: ATRIAL FIBRILLATION
     Dosage: 300 MG
     Route: 048
     Dates: start: 20101201
  2. CALCIUM SUPPLEMENT [Concomitant]
     Indication: PROPHYLAXIS
  3. XALATAN [Concomitant]
     Indication: GLAUCOMA
  4. FOSAMAX [Concomitant]
     Indication: PROPHYLAXIS
  5. CARDIZEM [Concomitant]
     Indication: ATRIAL FIBRILLATION
     Dates: start: 20101201

REACTIONS (4)
  - VEIN DISORDER [None]
  - HAEMATOMA [None]
  - BLOOD URINE PRESENT [None]
  - CONTUSION [None]
